FAERS Safety Report 13336426 (Version 2)
Quarter: 2020Q4

REPORT INFORMATION
  Report Type: Spontaneous
  Country: US (occurrence: US)
  Receive Date: 20170314
  Receipt Date: 20201027
  Transmission Date: 20210113
  Serious: Yes (Other)
  Sender: FDA-Public Use
  Company Number: US-JAZZ-JPI-P-024897

PATIENT
  Sex: Female
  Weight: 90 kg

DRUGS (3)
  1. XYREM [Suspect]
     Active Substance: SODIUM OXYBATE
     Dosage: 3.5 GRAM, BID
     Route: 048
  2. XYREM [Suspect]
     Active Substance: SODIUM OXYBATE
     Indication: NARCOLEPSY
     Dosage: UNK UNK, BID
     Route: 048
     Dates: start: 2011
  3. XYREM [Suspect]
     Active Substance: SODIUM OXYBATE
     Indication: CATAPLEXY
     Dosage: 4.5 GRAM, BID
     Route: 048

REACTIONS (13)
  - Irritability [Not Recovered/Not Resolved]
  - Decreased appetite [Not Recovered/Not Resolved]
  - Condition aggravated [Not Recovered/Not Resolved]
  - Somnolence [Not Recovered/Not Resolved]
  - Eructation [Recovered/Resolved]
  - Reflux gastritis [Recovered/Resolved]
  - Agitation [Not Recovered/Not Resolved]
  - Nausea [Recovered/Resolved]
  - Weight decreased [Recovering/Resolving]
  - Depression [Not Recovered/Not Resolved]
  - Retching [Recovered/Resolved]
  - Feeling of despair [Not Recovered/Not Resolved]
  - Fatigue [Not Recovered/Not Resolved]

NARRATIVE: CASE EVENT DATE: 2011
